FAERS Safety Report 10145071 (Version 1)
Quarter: 2014Q2

REPORT INFORMATION
  Report Type: Spontaneous
  Country: CA (occurrence: CA)
  Receive Date: 20140501
  Receipt Date: 20140501
  Transmission Date: 20141212
  Serious: Yes (Hospitalization)
  Sender: FDA-Public Use
  Company Number: CA-AMGEN INC.-CANSP2014030979

PATIENT
  Age: 60 Year
  Sex: Female

DRUGS (3)
  1. ENBREL [Suspect]
     Indication: RHEUMATOID ARTHRITIS
     Dosage: 50 MG, QWK
     Route: 065
     Dates: start: 20110630
  2. CIPRALEX                           /01588501/ [Concomitant]
     Dosage: UNK
  3. NORTRIPTYLINE [Concomitant]
     Dosage: UNK

REACTIONS (4)
  - Cholelithiasis [Recovered/Resolved]
  - Bile duct stone [Recovered/Resolved]
  - Liver disorder [Recovered/Resolved]
  - Vertigo [Not Recovered/Not Resolved]
